FAERS Safety Report 26048247 (Version 1)
Quarter: 2025Q4

REPORT INFORMATION
  Report Type: Spontaneous
  Country: US (occurrence: US)
  Receive Date: 20251114
  Receipt Date: 20251114
  Transmission Date: 20260118
  Serious: Yes (Other)
  Sender: NOVO NORDISK
  Company Number: US-NOVOPROD-706325

PATIENT
  Sex: Male

DRUGS (3)
  1. NOVOLOG MIX 70/30 [Suspect]
     Active Substance: INSULIN ASPART
     Indication: Diabetes mellitus
     Dosage: 52 IU
     Route: 058
     Dates: start: 2017
  2. NOVOLOG MIX 70/30 [Suspect]
     Active Substance: INSULIN ASPART
     Dosage: 60 IU
     Route: 058
  3. TRULICITY [Concomitant]
     Active Substance: DULAGLUTIDE
     Indication: Product used for unknown indication
     Dosage: UNK

REACTIONS (4)
  - Road traffic accident [Unknown]
  - Intervertebral disc degeneration [Unknown]
  - Glycosylated haemoglobin increased [Recovering/Resolving]
  - Blood glucose increased [Not Recovered/Not Resolved]

NARRATIVE: CASE EVENT DATE: 20190101
